FAERS Safety Report 18346330 (Version 1)
Quarter: 2020Q4

REPORT INFORMATION
  Report Type: Spontaneous
  Country: US (occurrence: US)
  Receive Date: 20201005
  Receipt Date: 20201005
  Transmission Date: 20210114
  Serious: Yes (Death, Other)
  Sender: FDA-Public Use
  Company Number: US-JNJFOC-20200942163

PATIENT

DRUGS (1)
  1. SPRAVATO [Suspect]
     Active Substance: ESKETAMINE
     Indication: PRODUCT USED FOR UNKNOWN INDICATION

REACTIONS (4)
  - Product dose omission issue [Not Recovered/Not Resolved]
  - Depression [Not Recovered/Not Resolved]
  - Completed suicide [Fatal]
  - Product availability issue [Not Recovered/Not Resolved]

NARRATIVE: CASE EVENT DATE: 20200922
